FAERS Safety Report 7706128-2 (Version None)
Quarter: 2011Q3

REPORT INFORMATION
  Report Type: 
  Country: None (occurrence: None)
  Receive Date: 20110818
  Receipt Date: 20110808
  Transmission Date: 20111222
  Serious: Yes (Hospitalization)
  Sender: FDA-Public Use
  Company Number: FUR-11-16

PATIENT
  Age: 24 Year
  Sex: Female

DRUGS (4)
  1. SPIRONOLACTONE [Concomitant]
  2. PREDNISONE [Concomitant]
  3. HYDROXYCHLOROQUINE [Concomitant]
  4. FUROSEMIDE [Suspect]
     Indication: GLOMERULONEPHRITIS
     Dosage: 40MG/DAY

REACTIONS (1)
  - DERMATITIS BULLOUS [None]
